FAERS Safety Report 10004101 (Version 1)
Quarter: 2014Q1

REPORT INFORMATION
  Report Type: Spontaneous
  Country: US (occurrence: US)
  Receive Date: 20140312
  Receipt Date: 20140312
  Transmission Date: 20141002
  Serious: No
  Sender: FDA-Public Use
  Company Number: US-INCYTE CORPORATION-2014IN000296

PATIENT
  Sex: Male

DRUGS (12)
  1. JAKAFI [Suspect]
     Indication: POLYCYTHAEMIA VERA
     Dosage: NOT SPECIFIED
     Route: 065
  2. JAKAFI [Suspect]
     Dosage: 15 MG, BID
     Route: 048
     Dates: start: 201305
  3. LOSARTAN POTASSIUM [Concomitant]
  4. LANTUS SOLOSTAR [Concomitant]
     Dosage: 100 UNITS/ML
  5. NOVOLOG [Concomitant]
  6. METOPROLOL SUCCINATE [Concomitant]
  7. ALLOPURINOL [Concomitant]
  8. POTASSIUM [Concomitant]
  9. ASPIRIN [Concomitant]
  10. MULTIVITAMIN                       /00097801/ [Concomitant]
  11. NIACIN [Concomitant]
  12. ZYRTEC [Concomitant]

REACTIONS (1)
  - Rash [Unknown]
